FAERS Safety Report 8789137 (Version 1)
Quarter: 2012Q4

REPORT INFORMATION
  Report Type: Spontaneous
  Country: US (occurrence: None)
  Receive Date: 20120904
  Receipt Date: 20120904
  Transmission Date: 20130627
  Serious: Yes (Other)
  Sender: FDA-Public Use
  Company Number: 110317-000102

PATIENT
  Age: 36 Year
  Sex: Female

DRUGS (4)
  1. PROACTIV CLEANSER [Suspect]
     Indication: ACNE
     Dosage: twice dermal
     Dates: start: 20110228
  2. REPAIRING TREATMENT [Suspect]
     Indication: ACNE
     Dosage: twice dermal
     Dates: start: 20110228
  3. REFINING MASK [Suspect]
     Indication: ACNE
     Dosage: twice dermal
     Dates: start: 20110208
  4. OIL FREE MOISTURE SPF 15 [Suspect]
     Indication: ACNE
     Dosage: twice dermal
     Dates: start: 20110228

REACTIONS (1)
  - Anaphylactic shock [None]
